FAERS Safety Report 4826788-3 (Version None)
Quarter: 2005Q4

REPORT INFORMATION
  Report Type: 
  Country: None (occurrence: None)
  Receive Date: 20051014
  Receipt Date: 20050621
  Transmission Date: 20060501
  Serious: No
  Sender: FDA-Public Use
  Company Number: 2005SP001532

PATIENT
  Age: 84 Year
  Sex: Male
  Weight: 58.9676 kg

DRUGS (2)
  1. LUNESTA [Suspect]
     Indication: INSOMNIA
     Dosage: 3 MG;HS;ORAL
     Route: 048
     Dates: start: 20050620
  2. CHLORDIAZEPOXIDE [Concomitant]

REACTIONS (1)
  - MIDDLE INSOMNIA [None]
